FAERS Safety Report 9340426 (Version 1)
Quarter: 2013Q2

REPORT INFORMATION
  Report Type: Report from Study
  Country: BR (occurrence: BR)
  Receive Date: 20130610
  Receipt Date: 20130610
  Transmission Date: 20140414
  Serious: Yes (Death)
  Sender: FDA-Public Use
  Company Number: PHHY2013BR058093

PATIENT
  Sex: Male
  Weight: 62 kg

DRUGS (13)
  1. EXELON PATCH [Suspect]
     Indication: DEMENTIA ALZHEIMER^S TYPE
     Dosage: 4.6 MG, DAILY
     Route: 062
     Dates: start: 201211
  2. EXELON PATCH [Suspect]
     Dosage: 9.5 MG, DAILY
     Route: 062
     Dates: start: 201301
  3. EXELON [Suspect]
     Indication: DEMENTIA ALZHEIMER^S TYPE
     Dosage: 1 DF, DAILY
     Route: 048
     Dates: start: 201304
  4. EXELON [Suspect]
     Dosage: 2 DF, DAILY
     Route: 048
     Dates: end: 20130528
  5. LOSARTAN + HIDROCLOROTIAZIDA [Concomitant]
     Indication: HYPERTENSION
     Dosage: 1 DF, DAILY
     Route: 048
     Dates: start: 2006, end: 20130528
  6. SELOZOK [Concomitant]
     Indication: HEART RATE IRREGULAR
     Dosage: 1 DF, DAILY
     Route: 048
     Dates: start: 2006, end: 20130528
  7. PLAVIX [Concomitant]
     Indication: ANTICOAGULANT THERAPY
     Dosage: 1 DF, DAILY
     Route: 048
     Dates: start: 2006, end: 20130528
  8. ASPIRINA PREVENT [Concomitant]
     Dosage: 1 DF, DAILY
     Route: 048
     Dates: start: 2006, end: 20130528
  9. AMLODIPINE [Concomitant]
     Indication: HYPERTENSION
     Dosage: 1 DF, DAILY
     Route: 048
     Dates: start: 2006, end: 20130528
  10. ATORVASTATIN [Concomitant]
     Indication: BLOOD CHOLESTEROL INCREASED
     Dosage: 1 DF, DAILY
     Route: 048
     Dates: start: 2006, end: 20130528
  11. BONVIVA [Concomitant]
     Indication: CALCIUM DEFICIENCY
     Dosage: 1 DF, MONTHLY
     Route: 048
     Dates: start: 201207, end: 20130515
  12. DEPURA [Concomitant]
     Indication: VITAMIN D DEFICIENCY
     Dosage: 5 DRP, DAILY
     Route: 048
     Dates: start: 201207, end: 20130515
  13. CITALOPRAM [Concomitant]
     Indication: DEPRESSION
     Dosage: 1 DF, DAILY
     Route: 048
     Dates: start: 201207, end: 20130528

REACTIONS (4)
  - Sudden death [Fatal]
  - Coronary artery disease [Fatal]
  - Arteriosclerosis [Fatal]
  - Acute myocardial infarction [Fatal]
